FAERS Safety Report 5896757-3 (Version None)
Quarter: 2008Q3

REPORT INFORMATION
  Report Type: 
  Country: None (occurrence: None)
  Receive Date: 20080924
  Receipt Date: 20071128
  Transmission Date: 20090109
  Serious: Yes (Hospitalization)
  Sender: FDA-Public Use
  Company Number: US-ASTRAZENECA-2007UW27173

PATIENT
  Age: 8677 Day
  Sex: Male
  Weight: 76 kg

DRUGS (10)
  1. SEROQUEL [Suspect]
     Indication: SCHIZOPHRENIA
     Route: 048
     Dates: start: 20071018
  2. BIFEPRUNOX MESYLATE [Suspect]
     Indication: SCHIZOPHRENIA
     Route: 048
     Dates: start: 20070419, end: 20070419
  3. BIFEPRUNOX MESYLATE [Suspect]
     Route: 048
     Dates: start: 20070420, end: 20070420
  4. BIFEPRUNOX MESYLATE [Suspect]
     Route: 048
     Dates: start: 20070421, end: 20070421
  5. BIFEPRUNOX MESYLATE [Suspect]
     Route: 048
     Dates: start: 20070422, end: 20070422
  6. BIFEPRUNOX MESYLATE [Suspect]
     Route: 048
     Dates: start: 20070423, end: 20070423
  7. BIFEPRUNOX MESYLATE [Suspect]
     Route: 048
     Dates: start: 20070424, end: 20070424
  8. BIFEPRUNOX MESYLATE [Suspect]
     Route: 048
     Dates: start: 20070425, end: 20070425
  9. BIFEPRUNOX MESYLATE [Suspect]
     Route: 048
     Dates: start: 20070426, end: 20070426
  10. BIFEPRUNOX MESYLATE [Suspect]
     Route: 048
     Dates: start: 20070427, end: 20071018

REACTIONS (1)
  - PSYCHOTIC DISORDER [None]
